FAERS Safety Report 7451466-4 (Version None)
Quarter: 2011Q2

REPORT INFORMATION
  Report Type: 
  Country: None (occurrence: None)
  Receive Date: 20110502
  Receipt Date: 20110422
  Transmission Date: 20111010
  Serious: Yes (Death, Hospitalization)
  Sender: FDA-Public Use
  Company Number: B0708436A

PATIENT
  Sex: Female

DRUGS (2)
  1. PREVISCAN [Concomitant]
     Indication: ANTIPHOSPHOLIPID SYNDROME
     Route: 048
     Dates: start: 19720101, end: 20110227
  2. REVOLADE [Suspect]
     Dosage: 50MG PER DAY
     Route: 048
     Dates: start: 20110101, end: 20110225

REACTIONS (7)
  - COMA [None]
  - ADRENAL HAEMORRHAGE [None]
  - CHEST PAIN [None]
  - PULMONARY EMBOLISM [None]
  - ADRENAL CORTEX NECROSIS [None]
  - HAEMORRHAGIC STROKE [None]
  - ALTERED STATE OF CONSCIOUSNESS [None]
